FAERS Safety Report 8308190-5 (Version None)
Quarter: 2012Q2

REPORT INFORMATION
  Report Type: 
  Country: None (occurrence: None)
  Receive Date: 20120424
  Receipt Date: 20120410
  Transmission Date: 20120825
  Serious: Yes (Other)
  Sender: FDA-Public Use
  Company Number: JP-ROCHE-1043687

PATIENT
  Sex: Female
  Weight: 36 kg

DRUGS (2)
  1. ROCEPHIN [Suspect]
     Indication: PYREXIA
     Route: 041
     Dates: start: 20120224, end: 20120224
  2. FLOMOX [Concomitant]
     Indication: PYELONEPHRITIS
     Route: 048

REACTIONS (2)
  - COUGH [None]
  - DYSPNOEA [None]
